FAERS Safety Report 11540470 (Version 1)
Quarter: 2015Q3

REPORT INFORMATION
  Report Type: Spontaneous
  Country: US (occurrence: US)
  Receive Date: 20150923
  Receipt Date: 20150923
  Transmission Date: 20151125
  Serious: No
  Sender: FDA-Public Use
  Company Number: US-BEH-2014047263

PATIENT
  Sex: Female
  Weight: 82 kg

DRUGS (40)
  1. MOBIC [Concomitant]
     Active Substance: MELOXICAM
  2. PRAVASTATIN [Concomitant]
     Active Substance: PRAVASTATIN\PRAVASTATIN SODIUM
  3. SYNTHROID [Concomitant]
     Active Substance: LEVOTHYROXINE SODIUM
  4. PRIVIGEN [Suspect]
     Active Substance: HUMAN IMMUNOGLOBULIN G
     Route: 042
  5. CYANCOBALAMIN [Concomitant]
  6. VITAMIN D2 [Concomitant]
     Active Substance: ERGOCALCIFEROL
  7. ALL OTHER THERAPEUTIC PRODUCTS [Concomitant]
     Active Substance: UNSPECIFIED INGREDIENT
  8. GLIPIZIDE. [Concomitant]
     Active Substance: GLIPIZIDE
  9. VITAMIN D3 [Concomitant]
     Active Substance: CHOLECALCIFEROL
  10. SYMBICORT [Concomitant]
     Active Substance: BUDESONIDE\FORMOTEROL FUMARATE DIHYDRATE
  11. GABAPENTIN. [Concomitant]
     Active Substance: GABAPENTIN
  12. ALL OTHER THERAPEUTIC PRODUCTS [Concomitant]
     Active Substance: UNSPECIFIED INGREDIENT
  13. EPIPEN [Concomitant]
     Active Substance: EPINEPHRINE
  14. AZITHROMYCIN [Concomitant]
     Active Substance: AZITHROMYCIN ANHYDROUS
  15. PRILOSEC [Concomitant]
     Active Substance: OMEPRAZOLE MAGNESIUM
  16. PRIVIGEN [Suspect]
     Active Substance: HUMAN IMMUNOGLOBULIN G
     Indication: IMMUNODEFICIENCY COMMON VARIABLE
     Route: 042
  17. GLUCOTROL [Concomitant]
     Active Substance: GLIPIZIDE
  18. VENTOLIN [Concomitant]
     Active Substance: ALBUTEROL SULFATE
  19. FLONASE [Concomitant]
     Active Substance: FLUTICASONE PROPIONATE
  20. IRON [Concomitant]
     Active Substance: IRON
  21. CEPHALEXIN. [Concomitant]
     Active Substance: CEPHALEXIN
  22. ACYCLOVIR. [Concomitant]
     Active Substance: ACYCLOVIR
  23. METFORMIN [Concomitant]
     Active Substance: METFORMIN HYDROCHLORIDE
  24. ALL OTHER THERAPEUTIC PRODUCTS [Concomitant]
     Active Substance: UNSPECIFIED INGREDIENT
  25. ACETAMINOPHEN. [Concomitant]
     Active Substance: ACETAMINOPHEN
  26. VALACYCLOVIR [Concomitant]
     Active Substance: VALACYCLOVIR HYDROCHLORIDE
  27. ALL OTHER THERAPEUTIC PRODUCTS [Concomitant]
     Active Substance: UNSPECIFIED INGREDIENT
  28. RITALIN [Concomitant]
     Active Substance: METHYLPHENIDATE HYDROCHLORIDE
  29. POTASSIUM CHLORIDE. [Concomitant]
     Active Substance: POTASSIUM CHLORIDE
  30. SODIUM CHLORIDE. [Concomitant]
     Active Substance: SODIUM CHLORIDE
  31. FENOFIBRATE. [Concomitant]
     Active Substance: FENOFIBRATE
  32. FLONASE [Concomitant]
     Active Substance: FLUTICASONE PROPIONATE
  33. DIPHENHYDRAMINE. [Concomitant]
     Active Substance: DIPHENHYDRAMINE
  34. KEFLEX [Concomitant]
     Active Substance: CEPHALEXIN
  35. LASIX [Concomitant]
     Active Substance: FUROSEMIDE
  36. SINGULAIR [Concomitant]
     Active Substance: MONTELUKAST SODIUM
  37. HEPARIN [Concomitant]
     Active Substance: HEPARIN SODIUM
  38. MONURAL [Concomitant]
  39. TEGRETOL [Concomitant]
     Active Substance: CARBAMAZEPINE
  40. BENTYL [Concomitant]
     Active Substance: DICYCLOMINE HYDROCHLORIDE

REACTIONS (1)
  - Sinusitis [Unknown]
